FAERS Safety Report 15710432 (Version 1)
Quarter: 2018Q4

REPORT INFORMATION
  Report Type: Spontaneous
  Country: JP (occurrence: JP)
  Receive Date: 20181211
  Receipt Date: 20181211
  Transmission Date: 20190205
  Serious: Yes (Other)
  Sender: FDA-Public Use
  Company Number: JP-JNJFOC-20181209092

PATIENT
  Age: 78 Year
  Sex: Male
  Weight: 56 kg

DRUGS (19)
  1. PREDNISOLONE. [Suspect]
     Active Substance: PREDNISOLONE
     Indication: PLASMA CELL MYELOMA
     Dosage: 28 DAYS, 4 DOSES/ CYCLE
     Route: 048
     Dates: start: 20180815
  2. DEXAMETHASONE. [Suspect]
     Active Substance: DEXAMETHASONE
     Indication: PLASMA CELL MYELOMA
     Route: 042
     Dates: start: 20170328, end: 20170329
  3. MELPHALAN. [Suspect]
     Active Substance: MELPHALAN
     Indication: PLASMA CELL MYELOMA
     Dosage: 28 DAYS, 6 DOSES/CYCLE
     Route: 048
     Dates: start: 20180815
  4. BORTEZOMIB. [Suspect]
     Active Substance: BORTEZOMIB
     Indication: PLASMA CELL MYELOMA
     Route: 058
     Dates: start: 20161128, end: 20161208
  5. BORTEZOMIB. [Suspect]
     Active Substance: BORTEZOMIB
     Indication: PLASMA CELL MYELOMA
     Dosage: 1 CYCLE (40 DAYS/C, 2 DOSING)
     Route: 058
     Dates: start: 20171020, end: 20171127
  6. LENALIDOMIDE [Suspect]
     Active Substance: LENALIDOMIDE
     Indication: PLASMA CELL MYELOMA
     Dosage: 1 CYCLE (21 DAYS/C, 7 DOSING)
     Route: 048
     Dates: start: 20171128, end: 20171205
  7. DEXAMETHASONE. [Suspect]
     Active Substance: DEXAMETHASONE
     Indication: PLASMA CELL MYELOMA
     Dosage: 5 CYCLES (21 DAYS, 4 DOSING)
     Route: 042
     Dates: start: 20171128, end: 20180221
  8. DEXAMETHASONE. [Suspect]
     Active Substance: DEXAMETHASONE
     Indication: PLASMA CELL MYELOMA
     Dosage: 2 CYCLES (28 DAYS, 2 DOSING/C)
     Route: 042
     Dates: start: 20170809, end: 20171011
  9. PREDNISOLONE. [Suspect]
     Active Substance: PREDNISOLONE
     Indication: PLASMA CELL MYELOMA
     Dosage: 1 CYCLE (40 DAYS, 4 DOSING)
     Route: 048
     Dates: start: 20171020, end: 20171127
  10. DARATUMUMAB [Suspect]
     Active Substance: DARATUMUMAB
     Indication: PLASMA CELL MYELOMA
     Dosage: 1 CYCLE (28 DAYS/C, 2 DOSING)
     Route: 042
     Dates: start: 20180801, end: 20180808
  11. BORTEZOMIB. [Suspect]
     Active Substance: BORTEZOMIB
     Indication: PLASMA CELL MYELOMA
     Dosage: 28 DAYS/C, 4 DOSES/C
     Route: 058
     Dates: start: 20180815
  12. MELPHALAN. [Suspect]
     Active Substance: MELPHALAN
     Indication: PLASMA CELL MYELOMA
     Dosage: 1 CYCLE (40 DAYS, 4 DOSING)
     Route: 048
     Dates: start: 20171020, end: 20171127
  13. BORTEZOMIB. [Suspect]
     Active Substance: BORTEZOMIB
     Indication: PLASMA CELL MYELOMA
     Route: 058
     Dates: start: 20170328, end: 20170328
  14. DEXAMETHASONE. [Suspect]
     Active Substance: DEXAMETHASONE
     Indication: PLASMA CELL MYELOMA
     Route: 042
     Dates: start: 20161128, end: 20161209
  15. DARATUMUMAB [Suspect]
     Active Substance: DARATUMUMAB
     Indication: PLASMA CELL MYELOMA
     Dosage: 1 CYCLE (40 DAYS/C, 5 DOSING)
     Route: 042
     Dates: start: 20171019, end: 20171127
  16. DARATUMUMAB [Suspect]
     Active Substance: DARATUMUMAB
     Indication: PLASMA CELL MYELOMA
     Dosage: 5 CYCLE (21 DAYS/C, 1 DOSING)
     Route: 042
     Dates: start: 20171128, end: 20180221
  17. BORTEZOMIB. [Suspect]
     Active Substance: BORTEZOMIB
     Indication: PLASMA CELL MYELOMA
     Dosage: 5 CYCLES (21 DAYS/C, 4 DOSING)
     Route: 058
     Dates: start: 20171128, end: 20180221
  18. LENALIDOMIDE [Suspect]
     Active Substance: LENALIDOMIDE
     Indication: PLASMA CELL MYELOMA
     Route: 048
  19. DEXAMETHASONE. [Suspect]
     Active Substance: DEXAMETHASONE
     Indication: PLASMA CELL MYELOMA
     Dosage: 1 CYCLE (28 DAYS, 2 DOSING/C)
     Route: 042
     Dates: start: 20180801, end: 20180808

REACTIONS (1)
  - Malignant melanoma [Not Recovered/Not Resolved]

NARRATIVE: CASE EVENT DATE: 20181127
